FAERS Safety Report 9311611 (Version 1)
Quarter: 2013Q2

REPORT INFORMATION
  Report Type: Spontaneous
  Country: US (occurrence: US)
  Receive Date: 20130528
  Receipt Date: 20130528
  Transmission Date: 20140414
  Serious: No
  Sender: FDA-Public Use
  Company Number: US-ABBOTT-12P-163-0940120-00

PATIENT
  Sex: Female

DRUGS (1)
  1. ZEMPLAR CAPSULES 1MCG [Suspect]
     Indication: HYPERPARATHYROIDISM SECONDARY

REACTIONS (4)
  - Faeces discoloured [Recovered/Resolved]
  - Abdominal pain lower [Recovering/Resolving]
  - Urinary tract infection [Recovered/Resolved with Sequelae]
  - Dizziness [Recovered/Resolved]
